FAERS Safety Report 23514617 (Version 1)
Quarter: 2024Q1

REPORT INFORMATION
  Report Type: Spontaneous
  Country: AT (occurrence: AT)
  Receive Date: 20240212
  Receipt Date: 20240212
  Transmission Date: 20240410
  Serious: Yes (Hospitalization, Other)
  Sender: FDA-Public Use
  Company Number: AT-ROCHE-3426498

PATIENT
  Sex: Female
  Weight: 58 kg

DRUGS (64)
  1. TUKYSA [Suspect]
     Active Substance: TUCATINIB
     Indication: HER2 positive breast cancer
     Dosage: MOST RECENT DOSE 22/JAN/2023
     Route: 048
     Dates: start: 20230102
  2. TUKYSA [Suspect]
     Active Substance: TUCATINIB
     Dosage: MOST RECENT DOSE PRIOR TO THE EVENT: 22/JAN/2023
     Route: 065
     Dates: start: 20230102
  3. PERTUZUMAB [Suspect]
     Active Substance: PERTUZUMAB
     Indication: HER2 positive breast cancer
     Dosage: MOST RECENT DOSE: 12/SEP/2019
     Route: 042
     Dates: start: 20190724
  4. CAPECITABINE [Suspect]
     Active Substance: CAPECITABINE
     Indication: HER2 positive breast cancer
     Dosage: MOST RECENT DOSE PRIOR TO AE 09/DEC/2021, 22/MAR/2021
     Route: 048
     Dates: start: 20210109
  5. CAPECITABINE [Suspect]
     Active Substance: CAPECITABINE
     Dosage: 500 MG
     Route: 048
     Dates: start: 20200923, end: 20201220
  6. TRASTUZUMAB [Suspect]
     Active Substance: TRASTUZUMAB
     Indication: HER2 positive breast cancer
     Dosage: 6 MG/KG, Q3WEEKS
     Route: 065
     Dates: end: 20230206
  7. TRASTUZUMAB [Suspect]
     Active Substance: TRASTUZUMAB
     Dosage: MOST RECENT DOSE: 24/JUL/2019
     Route: 042
     Dates: start: 20190724, end: 20190912
  8. LOPERAMIDE [Suspect]
     Active Substance: LOPERAMIDE
     Indication: Diarrhoea
     Dosage: ONGOING = CHECKED
     Route: 065
     Dates: start: 20210215
  9. FAM-TRASTUZUMAB DERUXTECAN-NXKI [Suspect]
     Active Substance: FAM-TRASTUZUMAB DERUXTECAN-NXKI
     Indication: HER2 positive breast cancer
     Dosage: MOST RECENT DOSE PRIOR TO THE EVENT: 10/JAN/2022
     Route: 042
     Dates: start: 20220110, end: 20220131
  10. FAM-TRASTUZUMAB DERUXTECAN-NXKI [Suspect]
     Active Substance: FAM-TRASTUZUMAB DERUXTECAN-NXKI
     Dosage: 4.4 MG/KG, Q3WEEKS
     Route: 065
     Dates: start: 20220419
  11. FAM-TRASTUZUMAB DERUXTECAN-NXKI [Suspect]
     Active Substance: FAM-TRASTUZUMAB DERUXTECAN-NXKI
     Dosage: MOST RECENT DOSE: 24/MAR/2023
     Route: 065
     Dates: start: 20220324
  12. TYKERB [Suspect]
     Active Substance: LAPATINIB DITOSYLATE
     Indication: HER2 positive breast cancer
     Dosage: EVERY 0.25 DAYMOST RECENT DOSE: 16/DEC/2021
     Route: 048
     Dates: start: 20210109
  13. TYKERB [Suspect]
     Active Substance: LAPATINIB DITOSYLATE
     Dosage: MOST RECENT DOSE PRIOR TO THE EVENT: 28/DEC/2020 AND 09/JAN/2021, 22/MAR/2021
     Route: 048
     Dates: start: 20200923, end: 20201228
  14. TAXOL [Suspect]
     Active Substance: PACLITAXEL
     Indication: HER2 positive breast cancer
     Dosage: MOST RECENT DOSE: 12/SEP/20191 TIMES IN 3 WEEK
     Route: 042
     Dates: start: 20190724
  15. KADCYLA [Suspect]
     Active Substance: ADO-TRASTUZUMAB EMTANSINE
     Indication: HER2 positive breast cancer
     Dosage: 3.6 MG/KG, Q3WEEKS
     Route: 042
     Dates: start: 20191014, end: 20200518
  16. KADCYLA [Suspect]
     Active Substance: ADO-TRASTUZUMAB EMTANSINE
     Dosage: MOST RECENT DOSE PRIOR TO THE EVENT: 03/JUL/2020
     Route: 042
     Dates: start: 20200703
  17. XGEVA [Concomitant]
     Active Substance: DENOSUMAB
     Dosage: ONGOING = CHECKED
     Route: 065
     Dates: start: 20191011
  18. LENDORM [Concomitant]
     Active Substance: BROTIZOLAM
     Indication: Insomnia
     Dosage: ONGOING = CHECKED
     Route: 065
     Dates: start: 20211229
  19. ACETAMINOPHEN [Concomitant]
     Active Substance: ACETAMINOPHEN
     Dosage: ONGOING = CHECKED
     Route: 065
     Dates: start: 20190701
  20. HYDROMORPHONE HYDROCHLORIDE [Concomitant]
     Active Substance: HYDROMORPHONE HYDROCHLORIDE
     Dosage: EVERY 0.5 DAY
     Route: 065
     Dates: start: 20190716, end: 20200927
  21. HYDROMORPHONE HYDROCHLORIDE [Concomitant]
     Active Substance: HYDROMORPHONE HYDROCHLORIDE
     Dosage: EVERY 0.5 DAY
     Route: 065
     Dates: start: 20220207
  22. HYDROMORPHONE HYDROCHLORIDE [Concomitant]
     Active Substance: HYDROMORPHONE HYDROCHLORIDE
     Dosage: ONGOING = CHECKED
     Route: 065
     Dates: start: 20190716
  23. HYDROMORPHONE HYDROCHLORIDE [Concomitant]
     Active Substance: HYDROMORPHONE HYDROCHLORIDE
     Dosage: ONGOING = CHECKED
     Route: 065
     Dates: start: 20220207
  24. NEURONTIN [Concomitant]
     Active Substance: GABAPENTIN
     Dosage: EVERY 0.5 DAY
     Route: 065
     Dates: start: 201908, end: 201908
  25. VALACYCLOVIR HYDROCHLORIDE [Concomitant]
     Active Substance: VALACYCLOVIR HYDROCHLORIDE
     Dosage: 500 MG, QD
     Route: 065
     Dates: start: 20190716, end: 20191011
  26. URSODIOL [Concomitant]
     Active Substance: URSODIOL
     Indication: Gamma-glutamyltransferase increased
     Dosage: ONGOING = CHECKED
     Route: 065
     Dates: start: 20220401
  27. CEOLAT [Concomitant]
     Dosage: ONGOING = CHECKED
     Route: 065
     Dates: start: 20190815
  28. DEXAMETHASONE [Concomitant]
     Active Substance: DEXAMETHASONE
     Indication: Intracranial pressure increased
     Dosage: UNK
     Route: 065
     Dates: start: 20211229, end: 20220110
  29. DEXAMETHASONE [Concomitant]
     Active Substance: DEXAMETHASONE
     Dosage: ONGOING = CHECKED
     Route: 065
     Dates: start: 20210302, end: 20210304
  30. DEXAMETHASONE [Concomitant]
     Active Substance: DEXAMETHASONE
     Dosage: 8 MG
     Route: 065
     Dates: start: 20190704, end: 20190912
  31. DEXAMETHASONE [Concomitant]
     Active Substance: DEXAMETHASONE
     Dosage: UNK
     Route: 065
     Dates: start: 20220111, end: 20220112
  32. DEXAMETHASONE [Concomitant]
     Active Substance: DEXAMETHASONE
     Dosage: ONGOING = CHECKED
     Route: 065
     Dates: start: 20190705, end: 20190914
  33. DEXAMETHASONE [Concomitant]
     Active Substance: DEXAMETHASONE
     Dosage: UNK
     Route: 065
     Dates: start: 20220113, end: 20220114
  34. DEXAMETHASONE [Concomitant]
     Active Substance: DEXAMETHASONE
     Dosage: UNK
     Route: 065
     Dates: start: 20220115, end: 20220323
  35. DEXAMETHASONE [Concomitant]
     Active Substance: DEXAMETHASONE
     Dosage: ONGOING = CHECKED
     Route: 065
     Dates: start: 20220110
  36. EUTHYROX [Concomitant]
     Active Substance: LEVOTHYROXINE SODIUM
     Dosage: 25 ?G, QD
     Route: 065
     Dates: start: 20200930, end: 20210108
  37. EUTHYROX [Concomitant]
     Active Substance: LEVOTHYROXINE SODIUM
     Dosage: 75 ?G, QD
     Route: 065
     Dates: end: 201906
  38. EUTHYROX [Concomitant]
     Active Substance: LEVOTHYROXINE SODIUM
     Dosage: 50 MG, QD
     Route: 065
     Dates: start: 20190703, end: 20200929
  39. CALCIDURAN [ASCORBIC ACID;CALCIUM PHOSPHATE;CITRIC ACID;COLECALCIFEROL [Concomitant]
     Dosage: ONGOING = CHECKED
     Route: 065
     Dates: start: 20190717
  40. LOVENOX [Concomitant]
     Active Substance: ENOXAPARIN SODIUM
     Dosage: 40 MG, QD
     Route: 065
     Dates: start: 20210302, end: 20210305
  41. PANTOPRAZOLE SODIUM [Concomitant]
     Active Substance: PANTOPRAZOLE SODIUM
     Dosage: 40 MG, QD
     Route: 065
     Dates: start: 20190701
  42. PANTOPRAZOLE SODIUM [Concomitant]
     Active Substance: PANTOPRAZOLE SODIUM
     Dosage: 40 MG, QD
     Route: 065
     Dates: start: 20210222, end: 20210302
  43. TRAZODONE HYDROCHLORIDE [Concomitant]
     Active Substance: TRAZODONE HYDROCHLORIDE
     Dosage: 150 MG, QD
     Route: 065
     Dates: start: 20190716, end: 20200926
  44. EMEND [Concomitant]
     Active Substance: APREPITANT
     Dosage: ONGOING = CHECKED
     Route: 065
     Dates: start: 20220621
  45. EMEND [Concomitant]
     Active Substance: APREPITANT
     Dosage: ONGOING = CHECKED
     Dates: start: 20220621
  46. OLANZAPINE [Concomitant]
     Active Substance: OLANZAPINE
     Dosage: 10 MG
     Route: 065
     Dates: start: 20190904, end: 20200926
  47. OLANZAPINE [Concomitant]
     Active Substance: OLANZAPINE
     Dosage: 10 MG
     Dates: start: 20190821, end: 20190904
  48. ZOFRAN [Concomitant]
     Active Substance: ONDANSETRON HYDROCHLORIDE
     Dosage: ONGOING = CHECKED
     Route: 065
     Dates: start: 20190704, end: 20200703
  49. ZOFRAN [Concomitant]
     Active Substance: ONDANSETRON HYDROCHLORIDE
     Dosage: ONGOING = CHECKED
     Route: 065
     Dates: start: 20190701
  50. ZOFRAN [Concomitant]
     Active Substance: ONDANSETRON HYDROCHLORIDE
     Dosage: 0NGOING = CHECKED
     Route: 065
     Dates: start: 20220110
  51. ZOFRAN [Concomitant]
     Active Substance: ONDANSETRON HYDROCHLORIDE
     Dosage: EVERY 0.5 DAY
     Route: 065
     Dates: start: 20190705, end: 20190914
  52. ZOFRAN [Concomitant]
     Active Substance: ONDANSETRON HYDROCHLORIDE
     Dosage: 4 MG, QD
     Route: 065
     Dates: start: 20210302, end: 20210302
  53. PFIZER-BIONTECH COVID-19 VACCINE [Concomitant]
     Active Substance: TOZINAMERAN
     Dosage: ONGOING = NOT CHECKED
     Route: 065
     Dates: start: 20220125, end: 20220125
  54. ALPRAZOLAM [Concomitant]
     Active Substance: ALPRAZOLAM
     Dosage: ONGOING = CHECKED
     Route: 065
     Dates: start: 20190715
  55. SULTAMICILLIN [Concomitant]
     Active Substance: SULTAMICILLIN
     Dosage: UNK
     Route: 065
     Dates: start: 20220919
  56. DRONABINOL [Concomitant]
     Active Substance: DRONABINOL
     Dosage: 2.5 %
     Route: 065
     Dates: start: 20190716, end: 20210804
  57. DRONABINOL [Concomitant]
     Active Substance: DRONABINOL
     Dosage: ONGOING = CHECKED
     Route: 065
     Dates: start: 20210705
  58. AMOXICILLIN\CLAVULANATE POTASSIUM [Concomitant]
     Active Substance: AMOXICILLIN\CLAVULANATE POTASSIUM
     Dosage: EVERY 0.5 DAY
     Route: 065
     Dates: start: 20200527, end: 20200602
  59. ACETAMINOPHEN [Concomitant]
     Active Substance: ACETAMINOPHEN
     Dosage: 1 G
     Route: 065
     Dates: start: 20210302, end: 20210303
  60. NEULASTA [Concomitant]
     Active Substance: PEGFILGRASTIM
     Dosage: ONGOING = CHECKED
     Route: 065
     Dates: start: 20220420
  61. POLYETHYLENE GLYCOL 4000 [Concomitant]
     Active Substance: POLYETHYLENE GLYCOL 4000
     Dosage: ONGOING = CHECKED
     Route: 065
     Dates: start: 20190705
  62. CITALOPRAM [Concomitant]
     Active Substance: CITALOPRAM HYDROBROMIDE
     Dosage: ONGOING = CHECKED
     Route: 065
     Dates: start: 20190715
  63. SUCRALAN [Concomitant]
     Dosage: ONGOING = CHECKED
     Route: 065
     Dates: start: 20190701
  64. ORNITHINE ASPARTATE [Concomitant]
     Active Substance: ORNITHINE ASPARTATE
     Dosage: 2 TIMES IN 1 DAY
     Route: 065

REACTIONS (12)
  - Iron deficiency anaemia [Recovered/Resolved]
  - General physical health deterioration [Recovered/Resolved]
  - Gamma-glutamyltransferase increased [Recovered/Resolved]
  - Thrombocytopenia [Not Recovered/Not Resolved]
  - COVID-19 [Recovered/Resolved]
  - Intracranial pressure increased [Recovered/Resolved]
  - Aphthous ulcer [Recovered/Resolved]
  - Asthenia [Recovered/Resolved]
  - Vascular device infection [Recovered/Resolved]
  - Neutropenia [Recovered/Resolved]
  - Blood bilirubin increased [Recovered/Resolved]
  - Diarrhoea [Recovered/Resolved]

NARRATIVE: CASE EVENT DATE: 20201228
